FAERS Safety Report 4585899-0 (Version None)
Quarter: 2005Q1

REPORT INFORMATION
  Report Type: 
  Country: None (occurrence: None)
  Receive Date: 20050217
  Receipt Date: 20050214
  Transmission Date: 20050727
  Serious: Yes (Hospitalization)
  Sender: FDA-Public Use
  Company Number: DE-GLAXOSMITHKLINE-D0045892A

PATIENT
  Sex: Female

DRUGS (1)
  1. RELENZA [Suspect]
     Route: 055

REACTIONS (6)
  - ANAPHYLACTIC SHOCK [None]
  - FEELING HOT [None]
  - FLUSHING [None]
  - SHOCK [None]
  - SWOLLEN TONGUE [None]
  - TACHYCARDIA [None]
